FAERS Safety Report 11910224 (Version 1)
Quarter: 2016Q1

REPORT INFORMATION
  Report Type: Spontaneous
  Country: GB (occurrence: GB)
  Receive Date: 20160112
  Receipt Date: 20160112
  Transmission Date: 20160526
  Serious: Yes (Other)
  Sender: FDA-Public Use
  Company Number: GB-JNJFOC-20151201793

PATIENT
  Age: 4 Year
  Sex: Male

DRUGS (3)
  1. OVEX [Suspect]
     Active Substance: MEBENDAZOLE
     Indication: ENTEROBIASIS
     Route: 065
     Dates: start: 20151112
  2. OVEX [Suspect]
     Active Substance: MEBENDAZOLE
     Indication: ENTEROBIASIS
     Route: 065
     Dates: start: 20151122
  3. OVEX [Suspect]
     Active Substance: MEBENDAZOLE
     Indication: ENTEROBIASIS
     Route: 065
     Dates: start: 20151107

REACTIONS (3)
  - Unresponsive to stimuli [Recovered/Resolved]
  - Seizure [Unknown]
  - Rash [Unknown]

NARRATIVE: CASE EVENT DATE: 201511
